FAERS Safety Report 8369498-0 (Version None)
Quarter: 2012Q2

REPORT INFORMATION
  Report Type: 
  Country: None (occurrence: None)
  Receive Date: 20120518
  Receipt Date: 20120515
  Transmission Date: 20120825
  Serious: Yes (Hospitalization, Other)
  Sender: FDA-Public Use
  Company Number: FR-PFIZER INC-2012117489

PATIENT
  Age: 87 Year
  Sex: Female

DRUGS (7)
  1. DIGOXIN [Suspect]
     Indication: ATRIAL FIBRILLATION
     Dosage: 1 DF, 1X/DAY
     Route: 048
     Dates: end: 20120417
  2. NEXIUM [Suspect]
     Dosage: 20 MG, 1X/DAY
     Route: 048
  3. ESIDRIX [Suspect]
     Indication: CARDIAC FAILURE
     Dosage: 25 MG, 1X/DAY
     Route: 048
  4. LEVOTHYROXINE SODIUM [Suspect]
     Indication: HYPOTHYROIDISM
     Dosage: 50 UG, 1X/DAY
     Route: 048
  5. LYRICA [Suspect]
     Dosage: 50 MG, 1X/DAY
     Route: 048
  6. LASIX [Suspect]
     Indication: CARDIAC FAILURE
     Dosage: 40 MG, 1X/DAY
     Route: 048
  7. SINTROM [Suspect]
     Indication: ATRIAL FIBRILLATION
     Dosage: 0.25 DF, 3 DAYS OUT OF 4
     Route: 048

REACTIONS (3)
  - BRADYCARDIA [None]
  - CEREBRAL HYPOPERFUSION [None]
  - DECREASED APPETITE [None]
